FAERS Safety Report 6201520-X (Version None)
Quarter: 2009Q2

REPORT INFORMATION
  Report Type: 
  Country: None (occurrence: None)
  Receive Date: 20090526
  Receipt Date: 20090513
  Transmission Date: 20091009
  Serious: Yes (Hospitalization)
  Sender: FDA-Public Use
  Company Number: JP-ASTRAZENECA-2009AC01091

PATIENT
  Age: 72 Year
  Sex: Male

DRUGS (7)
  1. MEROPEN [Suspect]
     Indication: PYREXIA
     Route: 065
     Dates: start: 20080814, end: 20080818
  2. CEFAMEZIN [Suspect]
     Indication: PYREXIA
     Dates: start: 20080810, end: 20080810
  3. FLOMOX [Suspect]
     Indication: PYREXIA
     Route: 048
     Dates: start: 20080811, end: 20080813
  4. OZEX [Suspect]
     Indication: DIARRHOEA
     Route: 048
     Dates: start: 20080807, end: 20080810
  5. EPADEL [Concomitant]
     Indication: HYPERLIPIDAEMIA
     Route: 048
  6. BIOFERMIN [Concomitant]
     Indication: DIARRHOEA
     Route: 048
     Dates: start: 20080807, end: 20080810
  7. TANNALBIN [Concomitant]
     Indication: DIARRHOEA
     Route: 048
     Dates: start: 20080807, end: 20080810

REACTIONS (4)
  - EOSINOPHILIA [None]
  - LIVER DISORDER [None]
  - PYREXIA [None]
  - RASH [None]
